FAERS Safety Report 8660626 (Version 2)
Quarter: 2013Q4

REPORT INFORMATION
  Report Type: Spontaneous
  Country: JP (occurrence: JP)
  Receive Date: 20120711
  Receipt Date: 20131105
  Transmission Date: 20140711
  Serious: Yes (Hospitalization)
  Sender: FDA-Public Use
  Company Number: JP-009507513-1207JPN000226

PATIENT
  Age: 71 Year
  Sex: Male

DRUGS (2)
  1. JANUVIA TABLETS 50MG [Suspect]
     Indication: TYPE 2 DIABETES MELLITUS
     Dosage: 50 MG, QD
     Route: 048
     Dates: start: 20110530, end: 20120521
  2. ACTOS [Concomitant]
     Indication: TYPE 2 DIABETES MELLITUS
     Dosage: 15 MG, QD
     Route: 048
     Dates: start: 20091005

REACTIONS (3)
  - Ileus [Recovering/Resolving]
  - Subileus [Recovering/Resolving]
  - Enterocolitis [Recovering/Resolving]
